FAERS Safety Report 10771220 (Version 1)
Quarter: 2015Q1

REPORT INFORMATION
  Report Type: Report from Study
  Country: US (occurrence: US)
  Receive Date: 20150206
  Receipt Date: 20150206
  Transmission Date: 20150721
  Serious: Yes (Hospitalization)
  Sender: FDA-Public Use
  Company Number: PHEH2015US002627

PATIENT
  Sex: Female

DRUGS (1)
  1. AFINITOR [Suspect]
     Active Substance: EVEROLIMUS
     Indication: MALIGNANT NEOPLASM OF ISLETS OF LANGERHANS
     Dosage: 10 MG, QD
     Route: 048

REACTIONS (4)
  - Product use issue [Unknown]
  - Blood potassium increased [Recovering/Resolving]
  - Blood glucose decreased [Recovering/Resolving]
  - Thrombosis [Recovering/Resolving]
